FAERS Safety Report 6658777-0 (Version None)
Quarter: 2010Q1

REPORT INFORMATION
  Report Type: 
  Country: None (occurrence: None)
  Receive Date: 20100330
  Receipt Date: 20100322
  Transmission Date: 20100710
  Serious: Yes (Hospitalization, Disabling)
  Sender: FDA-Public Use
  Company Number: GXKR2010CA02759

PATIENT
  Sex: Female
  Weight: 66 kg

DRUGS (7)
  1. CYCLOSPORINE [Suspect]
     Indication: BASEDOW'S DISEASE
     Dosage: 50 MG, BID
     Route: 048
     Dates: start: 20091128
  2. SYNTHROID [Concomitant]
  3. METOPROLOL TARTRATE [Concomitant]
  4. LORAZEPAM [Concomitant]
  5. PREDNISONE [Concomitant]
  6. LANSOPRAZOLE [Concomitant]
  7. METHOTREXATE [Concomitant]

REACTIONS (7)
  - CEREBRAL DISORDER [None]
  - CONFUSIONAL STATE [None]
  - FALL [None]
  - HEART RATE INCREASED [None]
  - HYPERTENSION [None]
  - MONOPARESIS [None]
  - WALKING AID USER [None]
